FAERS Safety Report 24530509 (Version 1)
Quarter: 2024Q4

REPORT INFORMATION
  Report Type: Spontaneous
  Country: IT (occurrence: IT)
  Receive Date: 20241021
  Receipt Date: 20241021
  Transmission Date: 20250115
  Serious: Yes (Life-Threatening, Hospitalization, Disabling)
  Sender: MYLAN
  Company Number: None

PATIENT
  Age: 67 Year
  Sex: Male
  Weight: 79 kg

DRUGS (5)
  1. METHOTREXATE [Suspect]
     Active Substance: METHOTREXATE
     Indication: Allogenic stem cell transplantation
     Dosage: 30 MILLIGRAM
     Route: 042
     Dates: start: 20240828
  2. METHOTREXATE [Suspect]
     Active Substance: METHOTREXATE
     Dosage: 20 MILLIGRAM
     Route: 042
     Dates: start: 20240830
  3. METHOTREXATE [Suspect]
     Active Substance: METHOTREXATE
     Dosage: 20 MILLIGRAM (10000 MG/MQ/DAY)
     Route: 042
     Dates: start: 20240902
  4. FLUDARABINE [Suspect]
     Active Substance: FLUDARABINE PHOSPHATE
     Indication: Allogenic stem cell transplantation
     Dosage: QD (30 MG/MQ/DAY)
     Route: 042
     Dates: start: 20240821, end: 20240825
  5. TREOSULFAN [Suspect]
     Active Substance: TREOSULFAN
     Indication: Allogenic stem cell transplantation
     Dosage: QD (10000 MG/MQ/DAY)
     Route: 042
     Dates: start: 20240823, end: 20240825

REACTIONS (1)
  - Hepatorenal failure [Recovering/Resolving]

NARRATIVE: CASE EVENT DATE: 20240911
